FAERS Safety Report 11266044 (Version 1)
Quarter: 2015Q3

REPORT INFORMATION
  Report Type: Spontaneous
  Country: US (occurrence: US)
  Receive Date: 20150713
  Receipt Date: 20150713
  Transmission Date: 20151125
  Serious: Yes (Other)
  Sender: FDA-Public Use
  Company Number: US-MPIJNJ-2012-09097

PATIENT
  Sex: Male

DRUGS (3)
  1. VELCADE [Suspect]
     Active Substance: BORTEZOMIB
     Dosage: UNK
  2. REVLIMID [Suspect]
     Active Substance: LENALIDOMIDE
     Indication: CHRONIC LYMPHOCYTIC LEUKAEMIA
     Dosage: 10 MG, CYCLIC
     Route: 048
     Dates: start: 20111228
  3. VELCADE [Suspect]
     Active Substance: BORTEZOMIB
     Indication: CHRONIC LYMPHOCYTIC LEUKAEMIA
     Dosage: UNK, CYCLIC

REACTIONS (2)
  - Diarrhoea [Unknown]
  - Fatigue [Unknown]
